FAERS Safety Report 7477609-4 (Version None)
Quarter: 2011Q2

REPORT INFORMATION
  Report Type: 
  Country: None (occurrence: None)
  Receive Date: 20110513
  Receipt Date: 20110502
  Transmission Date: 20111010
  Serious: Yes (Other)
  Sender: FDA-Public Use
  Company Number: BR-JNJFOC-20110503765

PATIENT
  Age: 71 Year
  Sex: Female
  Weight: 78 kg

DRUGS (12)
  1. CHLOROQUINE DIPHOSPHATE [Concomitant]
     Indication: OSTEOARTHRITIS
     Route: 048
  2. PIRACETAM [Concomitant]
     Indication: MEMORY IMPAIRMENT
     Route: 048
  3. MOTILIUM [Suspect]
     Indication: GASTROOESOPHAGEAL REFLUX DISEASE
     Route: 048
  4. CIMETIDINE [Concomitant]
     Indication: OSTEOARTHRITIS
     Route: 048
  5. ACETAMINOPHEN [Concomitant]
     Indication: OSTEOARTHRITIS
     Route: 048
  6. MYLICON GOTAS [Suspect]
     Indication: GASTROOESOPHAGEAL REFLUX DISEASE
     Route: 048
  7. CASCARA SAGRADA [Suspect]
     Indication: PRODUCT USED FOR UNKNOWN INDICATION
     Route: 065
  8. DIACEREIN [Concomitant]
     Indication: OSTEOARTHRITIS
     Route: 048
  9. MELOXICAM [Concomitant]
     Indication: OSTEOARTHRITIS
     Route: 048
  10. GINGKO BILOBA (CHINESE HERB) [Concomitant]
     Indication: MEMORY IMPAIRMENT
     Route: 048
  11. CYCLOBENZAPRINE [Concomitant]
     Indication: OSTEOARTHRITIS
     Route: 048
  12. PURAN T4 [Concomitant]
     Indication: HYPOTHYROIDISM
     Route: 048

REACTIONS (4)
  - DIVERTICULITIS [None]
  - DISCOMFORT [None]
  - FLATULENCE [None]
  - ABDOMINAL PAIN [None]
